FAERS Safety Report 6137821-3 (Version None)
Quarter: 2009Q1

REPORT INFORMATION
  Report Type: 
  Country: None (occurrence: None)
  Receive Date: 20090331
  Receipt Date: 20090220
  Transmission Date: 20090719
  Serious: No
  Sender: FDA-Public Use
  Company Number: US-BAYER-200910640BCC

PATIENT
  Age: 48 Year
  Sex: Male
  Weight: 159 kg

DRUGS (1)
  1. ALEVE (CAPLET) [Suspect]
     Indication: ARTHRALGIA
     Dosage: TOTAL DAILY DOSE: 440 MG  UNIT DOSE: 220 MG
     Route: 048
     Dates: start: 20090219, end: 20090220

REACTIONS (1)
  - ARTHRALGIA [None]
